FAERS Safety Report 8103232-4 (Version None)
Quarter: 2012Q1

REPORT INFORMATION
  Report Type: 
  Country: None (occurrence: None)
  Receive Date: 20120201
  Receipt Date: 20120118
  Transmission Date: 20120608
  Serious: Yes (Other)
  Sender: FDA-Public Use
  Company Number: KR-MYLANLABS-2012S1001574

PATIENT
  Age: 36 Year
  Sex: Male

DRUGS (9)
  1. METRONIDAZOLE [Suspect]
     Route: 065
  2. MEROPENEM [Suspect]
     Route: 065
  3. VANCOMYCIN [Concomitant]
     Route: 065
  4. IMIPENEM [Suspect]
     Route: 065
  5. CEFTRIAXONE [Concomitant]
     Route: 065
  6. TIZANIDINE HCL [Suspect]
     Route: 065
  7. CLONAZEPAM [Suspect]
     Route: 065
  8. CIPROFLOXACIN [Suspect]
     Route: 065
  9. CLINDAMYCIN [Suspect]
     Route: 065

REACTIONS (1)
  - LIVER INJURY [None]
